FAERS Safety Report 4458639-3 (Version None)
Quarter: 2004Q3

REPORT INFORMATION
  Report Type: 
  Country: None (occurrence: None)
  Receive Date: 20040917
  Receipt Date: 20031006
  Transmission Date: 20050211
  Serious: Yes (Hospitalization)
  Sender: FDA-Public Use
  Company Number: US-JNJFOC-20030604760

PATIENT
  Age: 29 Year
  Sex: Female
  Weight: 100.6985 kg

DRUGS (17)
  1. TOPAMAX [Suspect]
     Indication: CONVULSION
     Dosage: SEE IMAGE
     Dates: start: 20020101
  2. TOPAMAX [Suspect]
     Indication: WEIGHT INCREASED
     Dosage: SEE IMAGE
     Dates: start: 20020101
  3. TOPAMAX [Suspect]
     Indication: CONVULSION
     Dosage: SEE IMAGE
     Dates: start: 20020506
  4. TOPAMAX [Suspect]
     Indication: WEIGHT INCREASED
     Dosage: SEE IMAGE
     Dates: start: 20020506
  5. TOPAMAX [Suspect]
     Indication: CONVULSION
     Dosage: SEE IMAGE
     Dates: start: 20020901
  6. TOPAMAX [Suspect]
     Indication: WEIGHT INCREASED
     Dosage: SEE IMAGE
     Dates: start: 20020901
  7. TOPAMAX [Suspect]
     Indication: CONVULSION
     Dosage: SEE IMAGE
     Dates: start: 20021118
  8. TOPAMAX [Suspect]
     Indication: WEIGHT INCREASED
     Dosage: SEE IMAGE
     Dates: start: 20021118
  9. TOPAMAX [Suspect]
     Indication: CONVULSION
     Dosage: SEE IMAGE
     Dates: start: 20030111
  10. TOPAMAX [Suspect]
     Indication: WEIGHT INCREASED
     Dosage: SEE IMAGE
     Dates: start: 20030111
  11. TOPAMAX [Suspect]
     Indication: CONVULSION
     Dosage: SEE IMAGE
     Dates: start: 20030120
  12. TOPAMAX [Suspect]
     Indication: WEIGHT INCREASED
     Dosage: SEE IMAGE
     Dates: start: 20030120
  13. TOPAMAX [Suspect]
     Indication: CONVULSION
     Dosage: SEE IMAGE
     Dates: start: 20030428
  14. TOPAMAX [Suspect]
     Indication: WEIGHT INCREASED
     Dosage: SEE IMAGE
     Dates: start: 20030428
  15. TOPAMAX [Suspect]
     Indication: CONVULSION
     Dosage: SEE IMAGE
     Dates: start: 20030623
  16. TOPAMAX [Suspect]
     Indication: WEIGHT INCREASED
     Dosage: SEE IMAGE
     Dates: start: 20030623
  17. DEPAKOTE [Concomitant]

REACTIONS (6)
  - CONVULSION [None]
  - DRUG EXPOSURE DURING PREGNANCY [None]
  - GESTATIONAL DIABETES [None]
  - METABOLIC ACIDOSIS [None]
  - NAUSEA [None]
  - VOMITING [None]
